FAERS Safety Report 7194177-5 (Version None)
Quarter: 2010Q4

REPORT INFORMATION
  Report Type: 
  Country: None (occurrence: None)
  Receive Date: 20101223
  Receipt Date: 20101216
  Transmission Date: 20110411
  Serious: Yes (Death)
  Sender: FDA-Public Use
  Company Number: PL-CELGENEUS-129-50794-10121967

PATIENT
  Age: 79 Year
  Sex: Male

DRUGS (2)
  1. VIDAZA [Suspect]
     Route: 058
     Dates: start: 20101001, end: 20101109
  2. ALLOPURINOL [Concomitant]
     Route: 065

REACTIONS (1)
  - PNEUMONIA [None]
